FAERS Safety Report 10210741 (Version 1)
Quarter: 2014Q2

REPORT INFORMATION
  Report Type: Report from Study
  Country: MX (occurrence: MX)
  Receive Date: 20140602
  Receipt Date: 20140602
  Transmission Date: 20141212
  Serious: Yes (Hospitalization, Other)
  Sender: FDA-Public Use
  Company Number: PHHY2014MX067249

PATIENT
  Age: 82 Year
  Sex: Female
  Weight: 41 kg

DRUGS (2)
  1. ACLASTA [Suspect]
     Indication: BONE DISORDER
     Dosage: 1 DF, UNK
     Route: 042
  2. ACLASTA [Suspect]
     Indication: OFF LABEL USE
     Dosage: 1 DF, UNK
     Route: 042
     Dates: start: 201305, end: 201405

REACTIONS (2)
  - Intestinal obstruction [Recovered/Resolved]
  - Scar [Recovered/Resolved]
